FAERS Safety Report 14113220 (Version 1)
Quarter: 2017Q4

REPORT INFORMATION
  Report Type: Spontaneous
  Country: CA (occurrence: None)
  Receive Date: 20171021
  Receipt Date: 20171021
  Transmission Date: 20180321
  Serious: Yes (Death, Hospitalization)
  Sender: FDA-Public Use
  Company Number: None

PATIENT
  Age: 27 Year
  Sex: Male
  Weight: 48.4 kg

DRUGS (3)
  1. VIREAD [Concomitant]
     Active Substance: TENOFOVIR DISOPROXIL FUMARATE
  2. NEXAVAR [Suspect]
     Active Substance: SORAFENIB
     Dates: end: 20170509
  3. MORPINE [Concomitant]

REACTIONS (2)
  - Disease progression [None]
  - Alpha 1 foetoprotein increased [None]

NARRATIVE: CASE EVENT DATE: 20170603
